FAERS Safety Report 7602864-7 (Version None)
Quarter: 2011Q3

REPORT INFORMATION
  Report Type: 
  Country: None (occurrence: None)
  Receive Date: 20110712
  Receipt Date: 20110630
  Transmission Date: 20111222
  Serious: Yes (Hospitalization)
  Sender: FDA-Public Use
  Company Number: CO-JNJFOC-20110701419

PATIENT
  Age: 66 Year
  Sex: Female
  Weight: 40 kg

DRUGS (7)
  1. CALCIUM CITRATE [Concomitant]
     Indication: OSTEOPOROSIS
     Dates: start: 20100330
  2. VITAMIN D [Concomitant]
     Indication: OSTEOPOROSIS
     Route: 048
     Dates: start: 20100330
  3. LEFLUNOMIDE [Concomitant]
     Indication: RHEUMATOID ARTHRITIS
     Dates: start: 20091217
  4. DEFLAZACORT [Concomitant]
     Indication: RHEUMATOID ARTHRITIS
     Dates: start: 20091217
  5. IBANDRONATE [Concomitant]
     Indication: OSTEOPOROSIS
     Dates: start: 20100330
  6. MELOXICAM [Concomitant]
     Indication: RHEUMATOID ARTHRITIS
     Dates: start: 20091217
  7. GOLIMUMAB [Suspect]
     Indication: RHEUMATOID ARTHRITIS
     Route: 058
     Dates: start: 20100906

REACTIONS (1)
  - BLINDNESS UNILATERAL [None]
